FAERS Safety Report 26197958 (Version 1)
Quarter: 2025Q4

REPORT INFORMATION
  Report Type: Spontaneous
  Country: JP (occurrence: JP)
  Receive Date: 20251224
  Receipt Date: 20251224
  Transmission Date: 20260117
  Serious: Yes (Other)
  Sender: MALLINCKRODT
  Company Number: JP-MALLINCKRODT-MNK202508100

PATIENT
  Age: 66 Year
  Sex: Female
  Weight: 37 kg

DRUGS (13)
  1. NITRIC OXIDE [Suspect]
     Active Substance: NITRIC OXIDE
     Indication: Pulmonary hypertension
     Dosage: 20 PPM
     Route: 055
  2. NITRIC OXIDE [Suspect]
     Active Substance: NITRIC OXIDE
     Dosage: TAPERED TO 1 PPM
     Route: 055
  3. CARPERITIDE [Suspect]
     Active Substance: CARPERITIDE
     Indication: Product used for unknown indication
     Dosage: UNKNOWN
  4. OLPRINONE HYDROCHLORIDE [Concomitant]
     Active Substance: OLPRINONE HYDROCHLORIDE
     Dosage: UNKNOWN
  5. DOBUTAMINE [Concomitant]
     Active Substance: DOBUTAMINE HYDROCHLORIDE
     Dosage: UNKNOWN
  6. NOREPINEPHRINE BITARTRATE [Concomitant]
     Active Substance: NOREPINEPHRINE BITARTRATE
     Dosage: UNKNOWN
  7. PROPOFOL [Concomitant]
     Active Substance: PROPOFOL
     Indication: Anaesthesia
     Dosage: UNKNOWN
  8. DEXMEDETOMIDINE [Concomitant]
     Active Substance: DEXMEDETOMIDINE
     Dosage: UNKNOWN
  9. TOLVAPTAN [Concomitant]
     Active Substance: TOLVAPTAN
     Dosage: UNKNOWN
  10. SPIRONOLACTONE [Concomitant]
     Active Substance: SPIRONOLACTONE
     Dosage: UNKNOWN
  11. FUROSEMIDE [Concomitant]
     Active Substance: FUROSEMIDE
     Route: 048
  12. FUROSEMIDE [Concomitant]
     Active Substance: FUROSEMIDE
     Route: 048
  13. FUROSEMIDE [Concomitant]
     Active Substance: FUROSEMIDE
     Dosage: UNKNOWN (DOSE INCREASED)
     Route: 042

REACTIONS (4)
  - PaO2/FiO2 ratio decreased [Recovering/Resolving]
  - Pulmonary hypertension [Recovering/Resolving]
  - Rebound effect [Recovering/Resolving]
  - Ventricular extrasystoles [Unknown]
